FAERS Safety Report 12863541 (Version 1)
Quarter: 2016Q4

REPORT INFORMATION
  Report Type: Spontaneous
  Country: US (occurrence: US)
  Receive Date: 20161019
  Receipt Date: 20161019
  Transmission Date: 20170207
  Serious: No
  Sender: FDA-Public Use
  Company Number: US-OTSUKA-2016_022578

PATIENT

DRUGS (7)
  1. REXULTI [Suspect]
     Active Substance: BREXPIPRAZOLE
     Indication: PRODUCT USED FOR UNKNOWN INDICATION
     Dosage: 0.25 UNK, (1/29)
     Route: 065
  2. GABAPENTIN. [Suspect]
     Active Substance: GABAPENTIN
     Dosage: GRADUALLY REDUCED FROM 3600 UNK (3/15)
     Route: 065
  3. ELAVIL [Suspect]
     Active Substance: AMITRIPTYLINE HYDROCHLORIDE
     Indication: PRODUCT USED FOR UNKNOWN INDICATION
     Dosage: 50 MG (STARTED 6/7)
     Route: 065
  4. REXULTI [Suspect]
     Active Substance: BREXPIPRAZOLE
     Dosage: 0.5
     Route: 065
  5. AMBIEN [Suspect]
     Active Substance: ZOLPIDEM TARTRATE
     Indication: PRODUCT USED FOR UNKNOWN INDICATION
     Dosage: 0.5-20 (STARTED 5/26 LAST DOSE 6/16)
     Route: 065
  6. GABAPENTIN. [Suspect]
     Active Substance: GABAPENTIN
     Indication: PRODUCT USED FOR UNKNOWN INDICATION
     Dosage: 1500 UNK
     Route: 065
  7. REMERON [Suspect]
     Active Substance: MIRTAZAPINE
     Indication: PRODUCT USED FOR UNKNOWN INDICATION
     Dosage: 7.5 (STOPPPED 5/6 REINSTATED YESTERDAY)
     Route: 065

REACTIONS (12)
  - Depression [Unknown]
  - Emotional disorder [Unknown]
  - Pain in extremity [Unknown]
  - Crying [Not Recovered/Not Resolved]
  - Anger [Unknown]
  - Adjustment disorder [Unknown]
  - Decreased interest [Unknown]
  - Psychiatric symptom [Unknown]
  - Hypoaesthesia [Unknown]
  - Anhedonia [Unknown]
  - Fear [Unknown]
  - Anxiety [Unknown]
